FAERS Safety Report 15431175 (Version 1)
Quarter: 2018Q3

REPORT INFORMATION
  Report Type: Spontaneous
  Country: US (occurrence: US)
  Receive Date: 20180926
  Receipt Date: 20180926
  Transmission Date: 20181010
  Serious: No
  Sender: FDA-Public Use
  Company Number: US-B.I. PHARMACEUTICALS,INC./RIDGEFIELD-2018-BI-047332

PATIENT
  Sex: Female

DRUGS (3)
  1. GLYXAMBI [Suspect]
     Active Substance: EMPAGLIFLOZIN\LINAGLIPTIN
     Dosage: DAILY;  FORM STRENGTH: 10MG/5MG; FORMULATION: TABLET? ADMINISTRATION CORRECT? NR(NOT REPORTED) ?ACTI
     Route: 048
     Dates: end: 201807
  2. GLYXAMBI [Suspect]
     Active Substance: EMPAGLIFLOZIN\LINAGLIPTIN
     Indication: DIABETES MELLITUS
     Dosage: 1 TAB DAY;  FORM STRENGTH: 25 MG/ 5 MG; ADMINISTRATION NR(NOT REPORTED)   DOSE NOT CHANGED
     Route: 048
     Dates: start: 201807
  3. JARDIANCE [Suspect]
     Active Substance: EMPAGLIFLOZIN
     Indication: DIABETES MELLITUS
     Dosage: 1 TAB A DAY;  FORM STRENGTH: 25 MG; ADMINISTRATION CORRECT? NR(NOT REPORTED) ?DOSE NOT CHANGED
     Route: 048

REACTIONS (1)
  - Medication error [Unknown]
